FAERS Safety Report 10448399 (Version 2)
Quarter: 2015Q3

REPORT INFORMATION
  Report Type: Spontaneous
  Country: US (occurrence: US)
  Receive Date: 20140911
  Receipt Date: 20150929
  Transmission Date: 20151125
  Serious: Yes (Death, Other)
  Sender: FDA-Public Use
  Company Number: US-ABBVIE-14P-163-1279507-00

PATIENT
  Sex: Male

DRUGS (3)
  1. ANDROGEL [Suspect]
     Active Substance: TESTOSTERONE
     Indication: MOOD ALTERED
  2. ANDROGEL [Suspect]
     Active Substance: TESTOSTERONE
     Indication: ASTHENIA
     Route: 061
     Dates: start: 20110614, end: 20120925
  3. ANDROGEL [Suspect]
     Active Substance: TESTOSTERONE
     Indication: LIBIDO DECREASED

REACTIONS (14)
  - Cerebrovascular accident [Unknown]
  - Anxiety [Unknown]
  - Memory impairment [Unknown]
  - Faecal incontinence [Unknown]
  - Pain [Unknown]
  - Impaired work ability [Unknown]
  - Injury [Unknown]
  - Emotional distress [Unknown]
  - Mental impairment [Unknown]
  - Social problem [Unknown]
  - Physical disability [Unknown]
  - Economic problem [Unknown]
  - Cerebrovascular accident [Unknown]
  - Death [Fatal]

NARRATIVE: CASE EVENT DATE: 201109
